FAERS Safety Report 20562043 (Version 1)
Quarter: 2022Q1

REPORT INFORMATION
  Report Type: Spontaneous
  Country: US (occurrence: US)
  Receive Date: 20220307
  Receipt Date: 20220307
  Transmission Date: 20220423
  Serious: Yes (Hospitalization)
  Sender: FDA-Public Use
  Company Number: US-AVEO ONCOLOGY-2021-AVEO-US003653

PATIENT

DRUGS (20)
  1. FOTIVDA [Suspect]
     Active Substance: TIVOZANIB HYDROCHLORIDE
     Indication: Renal cell carcinoma
     Dosage: 0.89 MG DAILY FOR 21 DAYS THEN 7 DAYS OFF
     Route: 048
     Dates: start: 20210825
  2. FOTIVDA [Suspect]
     Active Substance: TIVOZANIB HYDROCHLORIDE
     Dosage: 0.89 MG, DAILY FOR 21 DAYS ON, THEN 7 DAYS OFF
     Route: 048
     Dates: start: 20211108
  3. FOTIVDA [Suspect]
     Active Substance: TIVOZANIB HYDROCHLORIDE
     Dosage: 0.89 MG DAILY FOR 21 DAYS THEN 7 DAYS OFF
     Dates: start: 20210825
  4. POLYETHYLENE GLYCOL [Concomitant]
     Active Substance: POLYETHYLENE GLYCOL
  5. REGLAN [Concomitant]
     Active Substance: METOCLOPRAMIDE HYDROCHLORIDE
  6. SENNA LAXATIVE AND DOCUSATE SODIUM [Concomitant]
  7. SILVADENE [Concomitant]
     Active Substance: SILVER SULFADIAZINE
  8. Vicks Nyquil severe cold + flu [Concomitant]
  9. XARELTO [Concomitant]
     Active Substance: RIVAROXABAN
  10. AMBIEN [Concomitant]
     Active Substance: ZOLPIDEM TARTRATE
  11. CIALIS [Concomitant]
     Active Substance: TADALAFIL
  12. ATROPINE\DIPHENOXYLATE [Concomitant]
     Active Substance: ATROPINE\DIPHENOXYLATE
  13. EUTHYROX [Concomitant]
     Active Substance: LEVOTHYROXINE SODIUM
  14. FENTANYL [Concomitant]
     Active Substance: FENTANYL
  15. GABAPENTIN [Concomitant]
     Active Substance: GABAPENTIN
  16. HYDROMORPHONE HCL [Concomitant]
     Active Substance: HYDROMORPHONE HYDROCHLORIDE
  17. ONDANSETRON [Concomitant]
     Active Substance: ONDANSETRON
  18. PANTOPRAZOLE [Concomitant]
     Active Substance: PANTOPRAZOLE
  19. ZOFRAN [Concomitant]
     Active Substance: ONDANSETRON HYDROCHLORIDE
  20. TRAMADOL [Concomitant]
     Active Substance: TRAMADOL

REACTIONS (4)
  - Knee arthroplasty [Unknown]
  - Therapy interrupted [Unknown]
  - Rash [Unknown]
  - Hordeolum [Unknown]

NARRATIVE: CASE EVENT DATE: 20211001
